FAERS Safety Report 6407668-9 (Version None)
Quarter: 2009Q4

REPORT INFORMATION
  Report Type: 
  Country: None (occurrence: None)
  Receive Date: 20091020
  Receipt Date: 20091006
  Transmission Date: 20100525
  Serious: Yes (Other)
  Sender: FDA-Public Use
  Company Number: IT-MYLANLABS-2009S1017269

PATIENT
  Age: 18 Year
  Sex: Male

DRUGS (3)
  1. AZATHIOPRINE [Suspect]
     Indication: IMMUNOSUPPRESSION
     Route: 065
  2. CYCLOSPORINE [Suspect]
     Indication: IMMUNOSUPPRESSION
  3. STEROIDS [Suspect]
     Indication: IMMUNOSUPPRESSION

REACTIONS (2)
  - CHRONIC MYELOID LEUKAEMIA [None]
  - TRANSPLANT REJECTION [None]
